FAERS Safety Report 20391188 (Version 1)
Quarter: 2022Q1

REPORT INFORMATION
  Report Type: Spontaneous
  Country: NL (occurrence: NL)
  Receive Date: 20220128
  Receipt Date: 20220128
  Transmission Date: 20220423
  Serious: Yes (Hospitalization)
  Sender: FDA-Public Use
  Company Number: None

PATIENT
  Age: 41 Year
  Sex: Female
  Weight: 91 kg

DRUGS (4)
  1. DEXAMETHASONE [Suspect]
     Active Substance: DEXAMETHASONE
     Indication: COVID-19 pneumonia
     Dosage: 6 MILLIGRAM DAILY; 1DD 6MG, DEXAMETHASON / BRAND NAME NOT SPECIFIED, THERAPY END DATE: ASKU
     Route: 065
     Dates: start: 20211208
  2. TOCILIZUMAB [Concomitant]
     Active Substance: TOCILIZUMAB
     Dosage: 400MG IN NACL 0.9% INFUSION (ONCE ON DAY 2), TOCILIZUMAB INFUSION / TOCILIZUMAB FOR INFUSION NVZA, T
  3. VENTOLIN [Concomitant]
     Active Substance: ALBUTEROL SULFATE
     Dosage: 200 UG/DOSE,, SALBUTAMOL INHALATION POWDER 200UG/DO / VENTOLIN DISKUS INHPDR 200MCG 60DO, THERAPY ST
  4. OMEPRAZOLE [Concomitant]
     Active Substance: OMEPRAZOLE
     Dosage: 40 MG, OMEPRAZOL CAPSULE MSR 40MG / BRAND NAME NOT SPECIFIED, THERAPY START AND END DATE: ASKU

REACTIONS (3)
  - Mania [Recovering/Resolving]
  - Aphasia [Recovering/Resolving]
  - Disorganised speech [Recovering/Resolving]

NARRATIVE: CASE EVENT DATE: 20211201
